FAERS Safety Report 19862148 (Version 3)
Quarter: 2021Q4

REPORT INFORMATION
  Report Type: Report from Study
  Country: US (occurrence: US)
  Receive Date: 20210921
  Receipt Date: 20211225
  Transmission Date: 20220303
  Serious: No
  Sender: FDA-Public Use
  Company Number: NVSC2021US213553

PATIENT
  Sex: Male

DRUGS (1)
  1. COSENTYX [Suspect]
     Active Substance: SECUKINUMAB
     Indication: Ankylosing spondylitis
     Dosage: UNK UNK, QW,(AFTER FIVE LOADING DOSE)
     Route: 058

REACTIONS (2)
  - Fear of injection [Recovered/Resolved]
  - Injection site haemorrhage [Recovered/Resolved]
